FAERS Safety Report 9512096 (Version 2)
Quarter: 2013Q3

REPORT INFORMATION
  Report Type: Spontaneous
  Country: ES (occurrence: None)
  Receive Date: 20130906
  Receipt Date: 20130912
  Transmission Date: 20140515
  Serious: Yes (Other)
  Sender: FDA-Public Use
  Company Number: AUR-APL-2013-07315

PATIENT
  Sex: Male

DRUGS (5)
  1. METFORMIN (METFORMIN) [Suspect]
     Indication: PRODUCT USED FOR UNKNOWN INDICATION
     Route: 048
     Dates: start: 20130725
  2. SIMVASTATIN (SIMVASTATIN) [Suspect]
     Route: 048
     Dates: start: 20130725
  3. COROPRES (CARVEDILOL) [Suspect]
     Route: 048
     Dates: start: 20130725
  4. ACOVIL (RAMIPRIL) [Suspect]
     Route: 048
     Dates: start: 20130725
  5. INALADUO [Suspect]
     Indication: EMPHYSEMA
     Dates: start: 2010, end: 20130729

REACTIONS (2)
  - Angioedema [None]
  - Anaphylactic shock [None]
